FAERS Safety Report 6209302-X (Version None)
Quarter: 2009Q2

REPORT INFORMATION
  Report Type: 
  Country: None (occurrence: None)
  Receive Date: 20090529
  Receipt Date: 20090521
  Transmission Date: 20091009
  Serious: Yes (Other)
  Sender: FDA-Public Use
  Company Number: GB-AMGEN-US348324

PATIENT
  Sex: Female
  Weight: 46.1 kg

DRUGS (5)
  1. ENBREL [Suspect]
     Indication: JUVENILE ARTHRITIS
     Route: 058
     Dates: start: 20060907
  2. PROCTOSTEROID [Concomitant]
     Dosage: UNKNOWN
     Route: 065
     Dates: start: 20061001
  3. IBUPROFEN [Concomitant]
     Dosage: AS REQUIRED DOSE UNKNOWN
     Route: 048
     Dates: start: 20060901
  4. METHOTREXATE [Concomitant]
     Route: 058
     Dates: start: 20040301
  5. FOLIC ACID [Concomitant]
     Route: 058
     Dates: start: 20060601

REACTIONS (1)
  - MENSTRUATION IRREGULAR [None]
